FAERS Safety Report 9438908 (Version 2)
Quarter: 2013Q3

REPORT INFORMATION
  Report Type: Spontaneous
  Country: KR (occurrence: KR)
  Receive Date: 20130802
  Receipt Date: 20130812
  Transmission Date: 20140515
  Serious: Yes (Other)
  Sender: FDA-Public Use
  Company Number: KR-GILEAD-2013-0080508

PATIENT
  Sex: Male

DRUGS (1)
  1. VIREAD [Suspect]
     Indication: HEPATITIS
     Dosage: UNK UNKNOWN, UNK

REACTIONS (2)
  - Viral load increased [Unknown]
  - Drug ineffective [Unknown]
